FAERS Safety Report 5113901-6 (Version None)
Quarter: 2006Q3

REPORT INFORMATION
  Report Type: 
  Country: None (occurrence: None)
  Receive Date: 20060921
  Receipt Date: 20060918
  Transmission Date: 20061208
  Serious: Yes (Hospitalization)
  Sender: FDA-Public Use
  Company Number: 163-CTHAL-05120183

PATIENT
  Age: 56 Year
  Sex: Female
  Weight: 50.8029 kg

DRUGS (22)
  1. THALIDOMIDE          (THALIDOMIDE) [Suspect]
     Indication: MULTIPLE MYELOMA
     Dosage: SEE IMAGE
     Route: 048
     Dates: start: 20041025, end: 20041107
  2. THALIDOMIDE          (THALIDOMIDE) [Suspect]
     Indication: MULTIPLE MYELOMA
     Dosage: SEE IMAGE
     Route: 048
     Dates: start: 20041108, end: 20041121
  3. THALIDOMIDE          (THALIDOMIDE) [Suspect]
     Indication: MULTIPLE MYELOMA
     Dosage: SEE IMAGE
     Route: 048
     Dates: start: 20041122, end: 20050813
  4. DEXAMETHASONE TAB [Suspect]
     Indication: MULTIPLE MYELOMA
     Dosage: 40 MG, QD, DAYS 1-3, 8-11, 17-20, ORAL
     Route: 048
     Dates: start: 20041022, end: 20050813
  5. DILAUDID [Concomitant]
  6. MS CONTIN [Concomitant]
  7. XANAX [Concomitant]
  8. SYNTHROID [Concomitant]
  9. PLAQEUNIL (HYDROXYCHLOROQUINE PHOSPHATE) [Concomitant]
  10. TOPAMAX [Concomitant]
  11. PREVACID [Concomitant]
  12. BEXTRA [Concomitant]
  13. ESTRATEST [Concomitant]
  14. MIRALAX [Concomitant]
  15. COLACE (DOCUSATE SODIUM) [Concomitant]
  16. CHLOROHYDRATE [Concomitant]
  17. ARANESP [Concomitant]
  18. LEXAPRO (ESCITALOPRAM OXALATE) [Concomitant]
  19. STEROID CREAM [Concomitant]
  20. LASIX [Concomitant]
  21. METHADONE HCL [Concomitant]
  22. LOVENOX [Concomitant]

REACTIONS (6)
  - DEEP VEIN THROMBOSIS [None]
  - FALL [None]
  - HEAD INJURY [None]
  - OSTEONECROSIS [None]
  - SPINAL FRACTURE [None]
  - SPONDYLOLISTHESIS [None]
